FAERS Safety Report 11202230 (Version 1)
Quarter: 2015Q2

REPORT INFORMATION
  Report Type: Spontaneous
  Country: PT (occurrence: PT)
  Receive Date: 20150619
  Receipt Date: 20150619
  Transmission Date: 20150821
  Serious: Yes (Hospitalization)
  Sender: FDA-Public Use
  Company Number: PT-ASTRAZENECA-2015SE59976

PATIENT
  Age: 76 Year
  Sex: Female

DRUGS (2)
  1. OMEPRAZOLE. [Suspect]
     Active Substance: OMEPRAZOLE
     Route: 048
  2. AMOXICILLIN/ CLAVULANIC ACID [Concomitant]

REACTIONS (3)
  - Megacolon [Unknown]
  - Septic shock [Unknown]
  - Clostridium difficile colitis [Unknown]
